FAERS Safety Report 7152366-X (Version None)
Quarter: 2010Q4

REPORT INFORMATION
  Report Type: 
  Country: None (occurrence: None)
  Receive Date: 20101209
  Receipt Date: 20101209
  Transmission Date: 20110411
  Serious: Yes (Hospitalization)
  Sender: FDA-Public Use
  Company Number: None

PATIENT
  Sex: Male
  Weight: 90.7194 kg

DRUGS (4)
  1. TRILAFON [Suspect]
     Indication: ANXIETY
     Dosage: DAILY
     Dates: start: 20000815
  2. TRILAFON [Suspect]
     Indication: DEPRESSION
     Dosage: DAILY
     Dates: start: 20000815
  3. TRILAFON [Suspect]
     Indication: OBSESSIVE-COMPULSIVE DISORDER
     Dosage: DAILY
     Dates: start: 20000815
  4. TRILAFON [Suspect]
     Indication: SCHIZOAFFECTIVE DISORDER
     Dosage: DAILY
     Dates: start: 20000815

REACTIONS (1)
  - SUICIDAL IDEATION [None]
